FAERS Safety Report 20109642 (Version 8)
Quarter: 2022Q2

REPORT INFORMATION
  Report Type: Report from Study
  Country: IE (occurrence: IE)
  Receive Date: 20211124
  Receipt Date: 20220624
  Transmission Date: 20220721
  Serious: Yes (Hospitalization, Other)
  Sender: FDA-Public Use
  Company Number: IE-IPSEN Group, Research and Development-2021-21097

PATIENT
  Age: 77 Year
  Sex: Female

DRUGS (9)
  1. LANREOTIDE ACETATE [Suspect]
     Active Substance: LANREOTIDE ACETATE
     Indication: Neuroendocrine tumour
     Dosage: 120 MG AS PER PRESCRIPTION
     Route: 058
     Dates: start: 20200312
  2. CAPECITABINE [Suspect]
     Active Substance: CAPECITABINE
     Indication: Disease progression
     Dosage: 2 TABLETS TWICE DAILY
     Route: 065
     Dates: start: 202112, end: 202112
  3. CAPECITABINE [Suspect]
     Active Substance: CAPECITABINE
     Dosage: 2 TABLETS TWICE DAILY
     Route: 065
     Dates: start: 202112, end: 202112
  4. LEVOTHYROXINE [Concomitant]
     Active Substance: LEVOTHYROXINE
     Dosage: 75 MCG ONCE DAILY
     Route: 050
  5. CRESTOR [Concomitant]
     Active Substance: ROSUVASTATIN CALCIUM
     Dosage: 10 MG ONCE DAILY
     Route: 050
  6. LERCANIDIPINE [Concomitant]
     Active Substance: LERCANIDIPINE
     Dosage: 10 MG ONCE DAILY
     Route: 050
  7. PREGABALIN [Concomitant]
     Active Substance: PREGABALIN
     Dosage: 50 MG BD
     Route: 050
  8. TEMODAL [Concomitant]
     Active Substance: TEMOZOLOMIDE
     Dosage: 180MG, ONCE DAILY FOR FIVE DAYS PER MONTH
     Route: 050
  9. ONDANSETRON [Concomitant]
     Active Substance: ONDANSETRON
     Dosage: 4MG, PRN (AS REQUIRED)

REACTIONS (9)
  - Liver disorder [Not Recovered/Not Resolved]
  - Disease progression [Not Recovered/Not Resolved]
  - Erythema [Recovering/Resolving]
  - Peripheral swelling [Recovering/Resolving]
  - Diarrhoea [Recovering/Resolving]
  - Hypertension [Recovered/Resolved]
  - Sciatica [Recovering/Resolving]
  - Malaise [Not Recovered/Not Resolved]
  - Off label use [Unknown]

NARRATIVE: CASE EVENT DATE: 20210101
